FAERS Safety Report 26114910 (Version 1)
Quarter: 2025Q4

REPORT INFORMATION
  Report Type: Spontaneous
  Country: US (occurrence: US)
  Receive Date: 20251203
  Receipt Date: 20251203
  Transmission Date: 20260118
  Serious: No
  Sender: DAIICHI
  Company Number: US-DAIICHI SANKYO, INC.-DS-2025-179136-USAA

PATIENT
  Age: 19 Year
  Sex: Male

DRUGS (5)
  1. PEXIDARTINIB [Suspect]
     Active Substance: PEXIDARTINIB
     Indication: Erdheim-Chester disease
     Dosage: UNK
     Route: 065
  2. TRAMETINIB [Concomitant]
     Active Substance: TRAMETINIB
     Indication: Erdheim-Chester disease
     Dosage: UNK
     Route: 065
  3. COBIMETINIB [Concomitant]
     Active Substance: COBIMETINIB
     Indication: Erdheim-Chester disease
     Dosage: UNK
     Route: 065
  4. ULIXERTINIB [Concomitant]
     Active Substance: ULIXERTINIB
     Indication: Erdheim-Chester disease
     Dosage: UNK
     Route: 065
  5. CLADRIBINE [Concomitant]
     Active Substance: CLADRIBINE
     Indication: Erdheim-Chester disease
     Dosage: UNK
     Route: 065

REACTIONS (1)
  - Drug ineffective for unapproved indication [Unknown]
